FAERS Safety Report 7003711-7 (Version None)
Quarter: 2010Q3

REPORT INFORMATION
  Report Type: 
  Country: None (occurrence: None)
  Receive Date: 20100920
  Receipt Date: 20090624
  Transmission Date: 20110219
  Serious: No
  Sender: FDA-Public Use
  Company Number: US-WYE-H09873209

PATIENT
  Sex: Female

DRUGS (1)
  1. PROTONIX [Suspect]
     Dosage: 40 MG 1-2 PER DAY
     Route: 048
     Dates: start: 20081001, end: 20090601

REACTIONS (4)
  - ASTHENIA [None]
  - GLOSSODYNIA [None]
  - HYPOAESTHESIA [None]
  - PARAESTHESIA [None]
